FAERS Safety Report 19915511 (Version 1)
Quarter: 2021Q4

REPORT INFORMATION
  Report Type: Spontaneous
  Country: US (occurrence: US)
  Receive Date: 20211004
  Receipt Date: 20211004
  Transmission Date: 20220303
  Serious: No
  Sender: FDA-Public Use
  Company Number: US-OTSUKA-2021_001912

PATIENT
  Sex: Male

DRUGS (3)
  1. ABILIFY MAINTENA [Suspect]
     Active Substance: ARIPIPRAZOLE
     Indication: Schizophrenia
     Dosage: 400 MG, UNK
     Route: 065
     Dates: start: 2017, end: 2019
  2. HALDOL [Suspect]
     Active Substance: HALOPERIDOL
     Indication: Product used for unknown indication
     Dosage: UNK (FOR 8 YEARS)
     Route: 065
  3. INVEGA SUSTENNA [Concomitant]
     Active Substance: PALIPERIDONE PALMITATE
     Indication: Product used for unknown indication
     Dosage: UNK
     Route: 065

REACTIONS (7)
  - Yellow skin [Unknown]
  - Injection site extravasation [Unknown]
  - Liver disorder [Unknown]
  - Muscle twitching [Not Recovered/Not Resolved]
  - Injection site swelling [Unknown]
  - Tardive dyskinesia [Not Recovered/Not Resolved]
  - Injection site pain [Unknown]
